FAERS Safety Report 17042927 (Version 1)
Quarter: 2019Q4

REPORT INFORMATION
  Report Type: Spontaneous
  Country: US (occurrence: US)
  Receive Date: 20191017
  Receipt Date: 20191017
  Transmission Date: 20200122
  Serious: No
  Sender: FDA-Public Use
  Company Number: None

PATIENT
  Sex: Male

DRUGS (1)
  1. ERLOTINIB 150MG [Suspect]
     Active Substance: ERLOTINIB
     Indication: HEPATIC CANCER
     Route: 048
     Dates: start: 20190829

REACTIONS (2)
  - Rash [None]
  - Diarrhoea [None]
